FAERS Safety Report 6982654-9 (Version None)
Quarter: 2010Q3

REPORT INFORMATION
  Report Type: 
  Country: None (occurrence: None)
  Receive Date: 20100914
  Receipt Date: 20100427
  Transmission Date: 20110219
  Serious: Yes (Other)
  Sender: FDA-Public Use
  Company Number: US-PFIZER INC-2010019782

PATIENT
  Sex: Female

DRUGS (3)
  1. LYRICA [Suspect]
     Indication: NEURALGIA
     Dosage: 50 MG, 1X/DAY
     Dates: start: 20100101
  2. FENTANYL [Concomitant]
     Indication: PAIN
     Dosage: 25 MG, EVERY 3RD DAY
     Route: 062
  3. DILANTIN [Concomitant]
     Indication: CONVULSION
     Dosage: 100 MG, 2X/DAY
     Route: 048

REACTIONS (7)
  - CHEST PAIN [None]
  - DIARRHOEA [None]
  - GAIT DISTURBANCE [None]
  - MALAISE [None]
  - MUSCULAR WEAKNESS [None]
  - ORAL PAIN [None]
  - SLEEP DISORDER [None]
